FAERS Safety Report 7898392-4 (Version None)
Quarter: 2011Q4

REPORT INFORMATION
  Report Type: 
  Country: None (occurrence: None)
  Receive Date: 20111107
  Receipt Date: 20111019
  Transmission Date: 20120403
  Serious: No
  Sender: FDA-Public Use
  Company Number: US-BAYER-2011-103010

PATIENT
  Sex: Male

DRUGS (1)
  1. MAGNEVIST [Suspect]

REACTIONS (2)
  - SNEEZING [None]
  - VOMITING [None]
